FAERS Safety Report 8903155 (Version 2)
Quarter: 2012Q4

REPORT INFORMATION
  Report Type: 
  Country: US (occurrence: US)
  Receive Date: 20121113
  Receipt Date: 20121206
  Transmission Date: 20130627
  Serious: Yes (Other)
  Sender: FDA-Public Use
  Company Number: US-PFIZER INC-2012279097

PATIENT
  Age: 21 Year
  Sex: Female
  Weight: 66 kg

DRUGS (2)
  1. DEPO-PROVERA [Suspect]
     Indication: CONTRACEPTION
     Dosage: 150 mg, every 3 months
     Route: 030
     Dates: start: 1997, end: 2000
  2. DEPO-PROVERA [Suspect]
     Dosage: UNK mg, UNK

REACTIONS (12)
  - Anaphylactic shock [Recovered/Resolved]
  - Generalised oedema [Recovered/Resolved]
  - Dyspnoea [Recovered/Resolved]
  - Heart rate increased [Recovered/Resolved]
  - Osteoporosis [Not Recovered/Not Resolved]
  - Tooth loss [Not Recovered/Not Resolved]
  - Depression [Unknown]
  - Urticaria [Recovered/Resolved]
  - Weight increased [Recovered/Resolved]
  - Teeth brittle [Not Recovered/Not Resolved]
  - Dermatitis atopic [Unknown]
  - Conjunctival disorder [Unknown]
